FAERS Safety Report 7474646-0 (Version None)
Quarter: 2011Q2

REPORT INFORMATION
  Report Type: 
  Country: None (occurrence: None)
  Receive Date: 20110512
  Receipt Date: 20110428
  Transmission Date: 20111010
  Serious: Yes (Other)
  Sender: FDA-Public Use
  Company Number: CO-JNJFOC-20110500671

PATIENT
  Age: 23 Year
  Sex: Male

DRUGS (1)
  1. RISPERDAL CONSTA [Suspect]
     Indication: MENTAL DISORDER DUE TO A GENERAL MEDICAL CONDITION
     Route: 030

REACTIONS (4)
  - CONVULSION [None]
  - TACHYCARDIA [None]
  - OFF LABEL USE [None]
  - AGGRESSION [None]
